FAERS Safety Report 6946040 (Version 3)
Quarter: 2013Q3

REPORT INFORMATION
  Report Type: Spontaneous
  Country: CA (occurrence: CA)
  Receive Date: 20090319
  Receipt Date: 20130926
  Transmission Date: 20140515
  Serious: Yes (Hospitalization, Other)
  Sender: FDA-Public Use
  Company Number: CA-PFIZER INC-2009181239

PATIENT
  Age: 57 Year
  Sex: Female

DRUGS (1)
  1. LIPITOR [Suspect]
     Indication: BLOOD CHOLESTEROL INCREASED
     Dosage: 40 MG, 1X/DAY
     Dates: end: 20070127

REACTIONS (5)
  - Rhabdomyolysis [Unknown]
  - Paralysis [Unknown]
  - Diabetes mellitus [Not Recovered/Not Resolved]
  - Bone disorder [Unknown]
  - Drug ineffective [Unknown]
